FAERS Safety Report 9249939 (Version 2)
Quarter: 2013Q2

REPORT INFORMATION
  Report Type: Spontaneous
  Country: GB (occurrence: GB)
  Receive Date: 20130424
  Receipt Date: 20130516
  Transmission Date: 20140414
  Serious: Yes (Hospitalization, Other)
  Sender: FDA-Public Use
  Company Number: GB-BRISTOL-MYERS SQUIBB COMPANY-18802256

PATIENT
  Age: 49 Year
  Sex: Female

DRUGS (20)
  1. BYETTA [Suspect]
     Indication: DIABETES MELLITUS
  2. BYETTA [Suspect]
     Indication: WEIGHT DECREASED
  3. METFORMIN HCL [Suspect]
     Indication: DIABETES MELLITUS
  4. INSULIN LISPRO [Suspect]
     Indication: DIABETES MELLITUS
     Dosage: 1DF: 7 UNITS/10G CARBOHYDRATE
     Route: 058
  5. LANTUS [Suspect]
     Indication: DIABETES MELLITUS
  6. CODEINE [Concomitant]
  7. ASPIRIN [Concomitant]
  8. LANSOPRAZOLE [Concomitant]
  9. CYCLOSPORIN [Concomitant]
  10. AZATHIOPRINE [Concomitant]
  11. GABAPENTIN [Concomitant]
  12. FLUVASTATIN [Concomitant]
  13. TRAMADOL [Concomitant]
  14. CALCIFEROL [Concomitant]
  15. DULOXETINE HCL [Concomitant]
  16. OMEGA-3 [Concomitant]
  17. EZETIMIBE [Concomitant]
  18. FLUCLOXACILLIN [Concomitant]
  19. INSULIN LISPRO [Concomitant]
  20. LEVEMIR [Concomitant]

REACTIONS (2)
  - Cerebrovascular accident [Recovering/Resolving]
  - Memory impairment [Not Recovered/Not Resolved]
